FAERS Safety Report 11213031 (Version 1)
Quarter: 2015Q2

REPORT INFORMATION
  Report Type: Spontaneous
  Country: US (occurrence: None)
  Receive Date: 20150622
  Receipt Date: 20150622
  Transmission Date: 20150821
  Serious: Yes (Other)
  Sender: FDA-Public Use
  Company Number: None

PATIENT
  Age: 67 Year
  Sex: Female
  Weight: 85.73 kg

DRUGS (6)
  1. CYCLOBENZADRINE [Concomitant]
  2. LISINOPRIL. [Concomitant]
     Active Substance: LISINOPRIL
  3. CELEBREX [Concomitant]
     Active Substance: CELECOXIB
  4. ATENOLOL. [Concomitant]
     Active Substance: ATENOLOL
  5. SULFAMETHOXAZOLE AND TRIMETHOPRIM DOUBLE STRENGTH [Suspect]
     Active Substance: SULFAMETHOXAZOLE\TRIMETHOPRIM
     Indication: URINARY TRACT INFECTION
     Route: 048
  6. SYNTHROID [Concomitant]
     Active Substance: LEVOTHYROXINE SODIUM

REACTIONS (3)
  - Lip swelling [None]
  - No reaction on previous exposure to drug [None]
  - Lip blister [None]

NARRATIVE: CASE EVENT DATE: 20150619
